FAERS Safety Report 8518952-7 (Version None)
Quarter: 2012Q3

REPORT INFORMATION
  Report Type: 
  Country: None (occurrence: None)
  Receive Date: 20120718
  Receipt Date: 20120711
  Transmission Date: 20120928
  Serious: Yes (Other)
  Sender: FDA-Public Use
  Company Number: JP-GLAXOSMITHKLINE-B0806826A

PATIENT
  Age: 17 Year
  Sex: Female

DRUGS (3)
  1. VALPROATE SODIUM [Concomitant]
     Indication: JUVENILE MYOCLONIC EPILEPSY
     Route: 048
  2. CLOBAZAM [Concomitant]
     Indication: JUVENILE MYOCLONIC EPILEPSY
     Route: 048
  3. LAMICTAL [Suspect]
     Indication: CONVULSION
     Route: 048

REACTIONS (4)
  - STEVENS-JOHNSON SYNDROME [None]
  - ERYTHEMA [None]
  - PYREXIA [None]
  - DISSEMINATED INTRAVASCULAR COAGULATION [None]
